FAERS Safety Report 11576730 (Version 4)
Quarter: 2015Q4

REPORT INFORMATION
  Report Type: Report from Study
  Country: US (occurrence: US)
  Receive Date: 20150930
  Receipt Date: 20151112
  Transmission Date: 20160304
  Serious: Yes (Life-Threatening)
  Sender: FDA-Public Use
  Company Number: US-BAYER-2015-428621

PATIENT
  Sex: Male
  Weight: 83.45 kg

DRUGS (17)
  1. PERCOCET [Concomitant]
     Active Substance: ACETAMINOPHEN\OXYCODONE HYDROCHLORIDE
     Dosage: 5/325 MG PRN
     Dates: start: 2014
  2. CALCIUM W/VITAMIN D NOS [Concomitant]
     Active Substance: CALCIUM\VITAMIN D
     Dosage: 200 MG, QD
     Dates: start: 2013
  3. MEGACE [Concomitant]
     Active Substance: MEGESTROL ACETATE
     Dosage: 40 MG, QD
     Dates: start: 201507
  4. RADIUM-233 DICHLORIDE [Suspect]
     Active Substance: RADIUM RA-223 DICHLORIDE
     Indication: PROSTATE CANCER METASTATIC
     Dosage: 115 ?CI, ONCE
     Route: 042
     Dates: start: 20150108, end: 20150108
  5. PREDNISONE. [Concomitant]
     Active Substance: PREDNISONE
     Indication: PROSTATE CANCER METASTATIC
     Dosage: 5 MG, QD
     Dates: start: 20150327, end: 20150713
  6. XTANDI [Concomitant]
     Active Substance: ENZALUTAMIDE
     Indication: PROSTATE CANCER METASTATIC
     Dosage: UNK
     Dates: start: 20150702
  7. RADIUM-233 DICHLORIDE [Suspect]
     Active Substance: RADIUM RA-223 DICHLORIDE
     Indication: METASTASES TO BONE
     Dosage: 116.4 ?CI, ONCE
     Route: 042
     Dates: start: 20150205, end: 20150205
  8. VICOPROFEN [Concomitant]
     Active Substance: HYDROCODONE BITARTRATE\IBUPROFEN
     Dosage: 7.5/200 MG PRN
     Dates: start: 2015
  9. RADIUM-233 DICHLORIDE [Suspect]
     Active Substance: RADIUM RA-223 DICHLORIDE
     Indication: PROSTATE CANCER METASTATIC
     Dosage: 111 ?CI, ONCE
     Route: 042
     Dates: start: 20150403, end: 20150403
  10. RADIUM-233 DICHLORIDE [Suspect]
     Active Substance: RADIUM RA-223 DICHLORIDE
     Indication: PROSTATE CANCER METASTATIC
     Dosage: 109 ?CI, ONCE
     Route: 042
     Dates: start: 20150501, end: 20150501
  11. ZYTIGA [Concomitant]
     Active Substance: ABIRATERONE ACETATE
     Indication: PROSTATE CANCER METASTATIC
     Dosage: 1000 MG, QD
     Dates: start: 20150327, end: 20150702
  12. DURAGESIC [Concomitant]
     Active Substance: FENTANYL
     Dosage: 50 ?G/H, QD
     Dates: start: 2015, end: 201507
  13. DURAGESIC [Concomitant]
     Active Substance: FENTANYL
     Dosage: 75 ?G/H, UNK
     Dates: start: 201507
  14. MULTIVITAMIN [Concomitant]
     Active Substance: VITAMINS
     Dosage: 1 DF, QD
     Dates: start: 2013
  15. RADIUM-233 DICHLORIDE [Suspect]
     Active Substance: RADIUM RA-223 DICHLORIDE
     Indication: PROSTATE CANCER METASTATIC
     Dosage: 109.2 ?CI, ONCE
     Route: 042
     Dates: start: 20150528, end: 20150528
  16. RADIUM-233 DICHLORIDE [Suspect]
     Active Substance: RADIUM RA-223 DICHLORIDE
     Indication: PROSTATE CANCER METASTATIC
     Dosage: 111.1 ?CI, ONCE
     Route: 042
     Dates: start: 20150306, end: 20150306
  17. AMBIEN [Concomitant]
     Active Substance: ZOLPIDEM TARTRATE
     Dosage: 6.25 MG, HS
     Dates: start: 201507

REACTIONS (1)
  - Pancytopenia [Unknown]

NARRATIVE: CASE EVENT DATE: 20150803
